FAERS Safety Report 21293933 (Version 2)
Quarter: 2022Q3

REPORT INFORMATION
  Report Type: Spontaneous
  Country: KR (occurrence: KR)
  Receive Date: 20220905
  Receipt Date: 20220928
  Transmission Date: 20221027
  Serious: Yes (Other)
  Sender: FDA-Public Use
  Company Number: KR-AMICUS THERAPEUTICS, INC.-AMI_1975

PATIENT
  Age: 50 Year
  Sex: Male

DRUGS (5)
  1. GALAFOLD [Suspect]
     Active Substance: MIGALASTAT HYDROCHLORIDE
     Indication: Fabry^s disease
     Dosage: 123 MILLIGRAM, QOD
     Route: 048
     Dates: start: 20211127
  2. IRBESARTAN [Concomitant]
     Active Substance: IRBESARTAN
     Indication: Proteinuria
     Dosage: 150 MILLIGRAM
     Route: 065
     Dates: start: 2004
  3. IRBESARTAN [Concomitant]
     Active Substance: IRBESARTAN
     Dosage: 300 MILLIGRAM
     Route: 065
  4. ASPIRIN [Concomitant]
     Active Substance: ASPIRIN
     Indication: Product used for unknown indication
     Dosage: UNK
     Route: 065
  5. VYTORIN [Concomitant]
     Active Substance: EZETIMIBE\SIMVASTATIN
     Indication: Product used for unknown indication
     Dosage: EZETIMIBE 10MG, SIMVASTATIN 10MG
     Route: 065

REACTIONS (1)
  - Autonomic neuropathy [Unknown]

NARRATIVE: CASE EVENT DATE: 20220101
